FAERS Safety Report 7378317-0 (Version None)
Quarter: 2011Q1

REPORT INFORMATION
  Report Type: 
  Country: None (occurrence: None)
  Receive Date: 20110328
  Receipt Date: 20110324
  Transmission Date: 20110831
  Serious: Yes (Hospitalization)
  Sender: FDA-Public Use
  Company Number: US-AMGEN-USASP2011015083

PATIENT
  Age: 80 Year
  Sex: Male
  Weight: 88.435 kg

DRUGS (22)
  1. DANAZOL [Concomitant]
     Dosage: UNK
     Dates: start: 20040521
  2. IMMUNOGLOBULINS [Concomitant]
     Dosage: UNK
     Dates: start: 20030101
  3. VALTREX [Concomitant]
  4. PROTONIX [Concomitant]
  5. RANEXA [Concomitant]
  6. COLACE [Concomitant]
  7. NPLATE [Suspect]
     Indication: IDIOPATHIC THROMBOCYTOPENIC PURPURA
     Dosage: 88 A?G, QWK
     Route: 058
     Dates: start: 20081118, end: 20110209
  8. RITUXIMAB [Concomitant]
     Dosage: UNK
     Dates: start: 20030701
  9. SIMVASTATIN [Concomitant]
  10. FERROUS SULFATE TAB [Concomitant]
  11. FOLIC ACID [Concomitant]
  12. HYDROCORTISONE [Concomitant]
  13. VITAMIN C                          /00008001/ [Concomitant]
  14. MULTIVITAMIN                       /00097801/ [Concomitant]
  15. LANTUS [Concomitant]
  16. K-DUR [Concomitant]
  17. METOPROLOL SUCCINATE [Concomitant]
  18. VITAMIN D [Concomitant]
  19. NIACIN [Concomitant]
  20. BUMEX [Concomitant]
  21. IMDUR [Concomitant]
  22. NOVOLOG MIX 70/30 [Concomitant]

REACTIONS (2)
  - CARDIAC FAILURE CONGESTIVE [None]
  - CHEST PAIN [None]
